FAERS Safety Report 22854242 (Version 19)
Quarter: 2025Q1

REPORT INFORMATION
  Report Type: Spontaneous
  Country: IN (occurrence: IN)
  Receive Date: 20230823
  Receipt Date: 20250318
  Transmission Date: 20250408
  Serious: Yes (Other)
  Sender: PFIZER
  Company Number: IN-PFIZER INC-2020137774

PATIENT
  Age: 67 Year
  Sex: Female

DRUGS (21)
  1. PALBOCICLIB [Suspect]
     Active Substance: PALBOCICLIB
     Indication: Breast cancer metastatic
     Dosage: 125 MG, 1X/DAY
     Route: 048
     Dates: start: 20190306
  2. PALBOCICLIB [Suspect]
     Active Substance: PALBOCICLIB
     Dosage: 125 MG, 1X/DAY
     Route: 048
     Dates: start: 201906
  3. PALBOCICLIB [Suspect]
     Active Substance: PALBOCICLIB
     Dosage: 125 MG, 1X/DAY
     Route: 048
     Dates: start: 20190705
  4. PALBOCICLIB [Suspect]
     Active Substance: PALBOCICLIB
     Dosage: 125 MG, 1X/DAY
     Route: 048
     Dates: start: 20200630, end: 2020
  5. PALBOCICLIB [Suspect]
     Active Substance: PALBOCICLIB
     Route: 048
  6. PALBOCICLIB [Suspect]
     Active Substance: PALBOCICLIB
     Route: 048
     Dates: start: 20201027
  7. PALBOCICLIB [Suspect]
     Active Substance: PALBOCICLIB
     Dosage: 125 MG, 1X/DAY (OD)
     Route: 048
     Dates: start: 20210728
  8. PALBOCICLIB [Suspect]
     Active Substance: PALBOCICLIB
     Dosage: 100 MG, 1X/DAY
     Route: 048
  9. PALBOCICLIB [Suspect]
     Active Substance: PALBOCICLIB
     Indication: Breast cancer metastatic
  10. PALBOCICLIB [Suspect]
     Active Substance: PALBOCICLIB
     Dosage: 125 MG, 1X/DAY
     Route: 048
  11. PALBOCICLIB [Suspect]
     Active Substance: PALBOCICLIB
     Route: 048
  12. PALBOCICLIB [Suspect]
     Active Substance: PALBOCICLIB
     Dates: start: 202307
  13. PALBOCICLIB [Suspect]
     Active Substance: PALBOCICLIB
     Dosage: 100 MG, 1X/DAY
     Route: 048
  14. PALBOCICLIB [Suspect]
     Active Substance: PALBOCICLIB
     Route: 048
  15. PALBOCICLIB [Suspect]
     Active Substance: PALBOCICLIB
     Route: 048
  16. FULVESTRANT [Concomitant]
     Active Substance: FULVESTRANT
  17. LETROZOLE [Concomitant]
     Active Substance: LETROZOLE
     Dosage: 2.5 MG, 1X/DAY
     Dates: start: 201906
  18. SHELCAL OS [Concomitant]
     Dosage: 1 DF, 2X/DAY
  19. OROFER-XT [FERROUS ASCORBATE;FOLIC ACID] [Concomitant]
     Dosage: 1 DF, 1X/DAY
  20. DEXORANGE [Concomitant]
     Dosage: 10 MG, 1X/DAY
  21. SUPRADYN [MINERALS NOS;VITAMINS NOS] [Concomitant]
     Dosage: 1 OD

REACTIONS (33)
  - Neutropenia [Recovered/Resolved]
  - Infection [Unknown]
  - Breast ulceration [Unknown]
  - Metastases to lymph nodes [Unknown]
  - Breast cancer metastatic [Unknown]
  - Malignant neoplasm progression [Unknown]
  - Cataract [Unknown]
  - White blood cell count increased [Unknown]
  - Hyporeflexia [Unknown]
  - Anxiety [Unknown]
  - Full blood count decreased [Unknown]
  - Lung opacity [Unknown]
  - Alopecia [Unknown]
  - Hair colour changes [Unknown]
  - Musculoskeletal stiffness [Unknown]
  - Urinary tract disorder [Unknown]
  - Insomnia [Unknown]
  - Tooth disorder [Unknown]
  - Haemoglobin decreased [Unknown]
  - White blood cell count decreased [Unknown]
  - Platelet count decreased [Unknown]
  - Vertigo [Unknown]
  - Spinal osteoarthritis [Unknown]
  - Intervertebral disc degeneration [Unknown]
  - Dyspnoea [Unknown]
  - Blood uric acid increased [Unknown]
  - Myalgia [Unknown]
  - Pyrexia [Unknown]
  - Vitamin D decreased [Unknown]
  - Diarrhoea [Unknown]
  - Urinary tract infection [Unknown]
  - Accidental overdose [Unknown]
  - Off label use [Unknown]

NARRATIVE: CASE EVENT DATE: 20220110
